FAERS Safety Report 8430817 (Version 5)
Quarter: 2012Q4

REPORT INFORMATION
  Report Type: 
  Country: US (occurrence: US)
  Receive Date: 20120228
  Receipt Date: 20121203
  Transmission Date: 20130627
  Serious: Yes (Congenital Anomaly, Other)
  Sender: FDA-Public Use
  Company Number: US-ACTELION-A-US2012-61517

PATIENT
  Age: 32 Year
  Sex: Female

DRUGS (5)
  1. TRACLEER [Suspect]
     Indication: PULMONARY ARTERIAL HYPERTENSION
     Dosage: UNK
     Route: 048
     Dates: start: 201110, end: 20120207
  2. REVATIO [Concomitant]
  3. PREDNISONE [Concomitant]
  4. PLAQUENIL [Concomitant]
  5. IMURAN [Concomitant]

REACTIONS (5)
  - Pregnancy [Unknown]
  - Cleft lip and palate [Not Recovered/Not Resolved]
  - Umbilical cord vascular disorder [Not Recovered/Not Resolved]
  - Delivery [Unknown]
  - Exposure during pregnancy [None]
